FAERS Safety Report 10238563 (Version 1)
Quarter: 2014Q2

REPORT INFORMATION
  Report Type: Spontaneous
  Country: CO (occurrence: CO)
  Receive Date: 20140616
  Receipt Date: 20140616
  Transmission Date: 20141212
  Serious: Yes (Other)
  Sender: FDA-Public Use
  Company Number: CO-PFIZER INC-2014162927

PATIENT
  Sex: Female

DRUGS (1)
  1. ADVIL MAX [Suspect]
     Dosage: UNK

REACTIONS (1)
  - Poisoning [Unknown]
